FAERS Safety Report 9351941 (Version 1)
Quarter: 2013Q2

REPORT INFORMATION
  Report Type: Spontaneous
  Country: ZA (occurrence: ZA)
  Receive Date: 20130617
  Receipt Date: 20130617
  Transmission Date: 20140414
  Serious: Yes (Hospitalization, Other)
  Sender: FDA-Public Use
  Company Number: ZA-VIIV HEALTHCARE LIMITED-B0899930A

PATIENT
  Age: 12 Year
  Sex: Female

DRUGS (7)
  1. LAMIVUDINE-HIV [Suspect]
     Indication: HIV INFECTION
     Route: 065
     Dates: start: 201012
  2. ABACAVIR [Suspect]
     Indication: HIV INFECTION
     Route: 065
     Dates: start: 201012
  3. EFAVIRENZ [Suspect]
     Indication: HIV INFECTION
     Route: 065
     Dates: start: 201012
  4. RIFAMPICIN [Concomitant]
     Indication: TUBERCULOSIS
     Dates: start: 201010
  5. ISONIAZID [Concomitant]
     Indication: TUBERCULOSIS
     Dates: start: 201010
  6. PYRAZINAMIDE [Concomitant]
     Indication: TUBERCULOSIS
     Dates: start: 201010
  7. ETHIONAMIDE [Concomitant]
     Indication: TUBERCULOSIS
     Dates: start: 201010

REACTIONS (28)
  - Immune reconstitution inflammatory syndrome [Recovered/Resolved]
  - Tuberculosis of central nervous system [Recovered/Resolved]
  - Paraparesis [Unknown]
  - Muscle disorder [Unknown]
  - Spinal cord injury [Unknown]
  - Urinary tract infection [Unknown]
  - CD4 lymphocytes decreased [Unknown]
  - Viral load decreased [Unknown]
  - Urinary retention [Unknown]
  - Sensory loss [Unknown]
  - Abasia [Unknown]
  - Urinary incontinence [Unknown]
  - Faecal incontinence [Unknown]
  - Pyrexia [Unknown]
  - VIIth nerve paralysis [Unknown]
  - Muscle atrophy [Unknown]
  - Muscular weakness [Unknown]
  - Hypotonia [Unknown]
  - Hyporeflexia [Unknown]
  - Areflexia [Unknown]
  - Hyperaesthesia [Unknown]
  - Anal dilatation [Unknown]
  - Bladder dilatation [Unknown]
  - Bladder pain [Unknown]
  - CSF protein increased [Unknown]
  - CSF glucose decreased [Unknown]
  - Cerebral infarction [Unknown]
  - Treatment noncompliance [Unknown]
